FAERS Safety Report 5165869-4 (Version None)
Quarter: 2006Q4

REPORT INFORMATION
  Report Type: 
  Country: None (occurrence: None)
  Receive Date: 20061128
  Receipt Date: 20061114
  Transmission Date: 20070319
  Serious: Yes (Other)
  Sender: FDA-Public Use
  Company Number: 2006SP003247

PATIENT
  Age: 47 Year
  Sex: Female

DRUGS (2)
  1. PEG-INTRON [Suspect]
     Indication: HEPATITIS C
     Dosage: 1.5 KG
     Dates: start: 20060804
  2. REBETOL [Suspect]
     Indication: HEPATITIS C
     Dosage: 800 MG
     Dates: start: 20060804

REACTIONS (3)
  - DERMATITIS BULLOUS [None]
  - ERYTHEMA MULTIFORME [None]
  - PORPHYRIA [None]
